FAERS Safety Report 11401344 (Version 1)
Quarter: 2015Q3

REPORT INFORMATION
  Report Type: Report from Study
  Country: CZ (occurrence: CZ)
  Receive Date: 20150820
  Receipt Date: 20150820
  Transmission Date: 20151125
  Serious: Yes (Other)
  Sender: FDA-Public Use
  Company Number: CZ-TEVA-587705ISR

PATIENT
  Age: 18 Year
  Sex: Female

DRUGS (1)
  1. RISPERIDONE. [Suspect]
     Active Substance: RISPERIDONE
     Dosage: 4 MILLIGRAM DAILY;
     Route: 048

REACTIONS (5)
  - Extrapyramidal disorder [Unknown]
  - Dyskinesia [Unknown]
  - Drug abuse [Unknown]
  - Hyperprolactinaemia [Unknown]
  - Dystonia [Unknown]
